FAERS Safety Report 5824554-3 (Version None)
Quarter: 2008Q3

REPORT INFORMATION
  Report Type: 
  Country: None (occurrence: None)
  Receive Date: 20080728
  Receipt Date: 20080718
  Transmission Date: 20090109
  Serious: Yes (Disabling)
  Sender: FDA-Public Use
  Company Number: GB-MERCK-0806GBR00087

PATIENT
  Age: 41 Year
  Sex: Male
  Weight: 66 kg

DRUGS (2)
  1. ZOCOR [Suspect]
     Indication: DIABETES MELLITUS
     Route: 048
     Dates: start: 20070515, end: 20070530
  2. ATORVASTATIN [Suspect]
     Indication: DIABETES MELLITUS
     Route: 048
     Dates: start: 20071004, end: 20071127

REACTIONS (2)
  - LETHARGY [None]
  - OFF LABEL USE [None]
